FAERS Safety Report 22859234 (Version 7)
Quarter: 2025Q4

REPORT INFORMATION
  Report Type: Report from Study
  Country: EU (occurrence: EU)
  Receive Date: 20230824
  Receipt Date: 20251028
  Transmission Date: 20260117
  Serious: Yes (Hospitalization, Other)
  Sender: TAKEDA
  Company Number: EU-TAKEDA-2023TUS081841

PATIENT
  Age: 38 Year
  Sex: Female

DRUGS (35)
  1. TEDUGLUTIDE [Suspect]
     Active Substance: TEDUGLUTIDE
     Indication: Short-bowel syndrome
     Dosage: 0.5 MILLIGRAM, QD
     Dates: start: 20151216, end: 20160204
  2. TEDUGLUTIDE [Suspect]
     Active Substance: TEDUGLUTIDE
     Dosage: 0.8 MILLIGRAM, QD
     Dates: start: 20160205, end: 20160222
  3. TEDUGLUTIDE [Suspect]
     Active Substance: TEDUGLUTIDE
     Dosage: 1 MILLIGRAM, QD
     Dates: start: 20160223, end: 20160228
  4. TEDUGLUTIDE [Suspect]
     Active Substance: TEDUGLUTIDE
     Dosage: 1.2 MILLIGRAM, QD
     Dates: start: 20160301, end: 201603
  5. TEDUGLUTIDE [Suspect]
     Active Substance: TEDUGLUTIDE
     Dosage: 1.4 MILLIGRAM, QD
     Dates: start: 201603, end: 20160317
  6. TEDUGLUTIDE [Suspect]
     Active Substance: TEDUGLUTIDE
     Dosage: 1.6 MILLIGRAM, QD
     Dates: start: 20160318, end: 20160322
  7. TEDUGLUTIDE [Suspect]
     Active Substance: TEDUGLUTIDE
     Dosage: 1.8 MILLIGRAM, QD
     Dates: start: 20160323, end: 20160404
  8. TEDUGLUTIDE [Suspect]
     Active Substance: TEDUGLUTIDE
     Dosage: 2 MILLIGRAM, QD
     Dates: start: 20160405, end: 20160926
  9. TEDUGLUTIDE [Suspect]
     Active Substance: TEDUGLUTIDE
     Dosage: 2.2 MILLIGRAM, QD
     Dates: start: 20160927, end: 20181128
  10. TEDUGLUTIDE [Suspect]
     Active Substance: TEDUGLUTIDE
     Dosage: 2.4 MILLIGRAM, QD
     Dates: start: 20181129, end: 20190527
  11. TEDUGLUTIDE [Suspect]
     Active Substance: TEDUGLUTIDE
     Dosage: 2.2 MILLIGRAM, QD
     Dates: start: 20190528, end: 20191028
  12. TEDUGLUTIDE [Suspect]
     Active Substance: TEDUGLUTIDE
     Dosage: 2.4 MILLIGRAM, QD
     Dates: start: 20191029, end: 20191128
  13. TEDUGLUTIDE [Suspect]
     Active Substance: TEDUGLUTIDE
     Dosage: 2.2 MILLIGRAM, QD
     Dates: start: 20191129, end: 20200122
  14. TEDUGLUTIDE [Suspect]
     Active Substance: TEDUGLUTIDE
     Dosage: 2.3 MILLIGRAM, QD
     Dates: start: 20200123, end: 20220324
  15. TEDUGLUTIDE [Suspect]
     Active Substance: TEDUGLUTIDE
     Dosage: 2.5 MILLIGRAM, QD
     Dates: start: 20220325, end: 202401
  16. TEDUGLUTIDE [Suspect]
     Active Substance: TEDUGLUTIDE
     Dosage: 2.6 MILLIGRAM, QD
     Dates: start: 202401, end: 20241007
  17. TEDUGLUTIDE [Suspect]
     Active Substance: TEDUGLUTIDE
     Dosage: 2.2 MILLIGRAM, QD
     Dates: start: 20241008, end: 20250131
  18. TEDUGLUTIDE [Suspect]
     Active Substance: TEDUGLUTIDE
     Dosage: 2.1 MILLIGRAM, QD
     Dates: start: 20250201, end: 20250702
  19. TEDUGLUTIDE [Suspect]
     Active Substance: TEDUGLUTIDE
     Dosage: 1.90 MILLIGRAM, QD
     Dates: start: 20250705
  20. Betolvex [Concomitant]
     Indication: Product substitution
     Dosage: 1 MILLIGRAM, QD
     Dates: start: 20210930
  21. MELATONIN [Concomitant]
     Active Substance: MELATONIN
     Indication: Insomnia
     Dosage: 2 MILLIGRAM, QD
     Dates: start: 20200828, end: 202012
  22. Morfin [Concomitant]
     Indication: Nephrolithiasis
     Dosage: UNK UNK, QD
     Dates: start: 20200421, end: 20200421
  23. NYSTATIN [Concomitant]
     Active Substance: NYSTATIN
     Indication: Tongue coated
     Dosage: 1000000 INTERNATIONAL UNIT
  24. ESOMEPRAZOLE [Concomitant]
     Active Substance: ESOMEPRAZOLE
     Indication: Prophylaxis
     Dosage: 20 MILLIGRAM, BID
     Dates: start: 20231204
  25. CREON [Concomitant]
     Active Substance: PANCRELIPASE AMYLASE\PANCRELIPASE LIPASE\PANCRELIPASE PROTEASE
     Indication: Abdominal pain upper
     Dosage: UNK
  26. CHOLECALCIFEROL [Concomitant]
     Active Substance: CHOLECALCIFEROL
     Indication: Malabsorption
     Dosage: 800 INTERNATIONAL UNIT, QD
     Dates: start: 20150701
  27. CALCIUM CARBONATE\CHOLECALCIFEROL [Concomitant]
     Active Substance: CALCIUM CARBONATE\CHOLECALCIFEROL
     Indication: Malabsorption
     Dosage: 500 MILLIGRAM, QD
     Dates: start: 20111212
  28. SERTRALINE HYDROCHLORIDE [Concomitant]
     Active Substance: SERTRALINE HYDROCHLORIDE
     Indication: Anxiety
     Dosage: 75 MILLIGRAM, QD
     Dates: start: 20160615
  29. PAPAVERINE [Concomitant]
     Active Substance: PAPAVERINE
     Indication: Abdominal pain upper
     Dosage: 40 MILLIGRAM
  30. OXYCODONE HYDROCHLORIDE [Concomitant]
     Active Substance: OXYCODONE HYDROCHLORIDE
     Indication: Abdominal pain upper
     Dosage: 5 MILLIGRAM
  31. IMOVANE [Concomitant]
     Active Substance: ZOPICLONE
     Indication: Insomnia
     Dosage: 7.5 MILLIGRAM
  32. FERINJECT [Concomitant]
     Active Substance: FERRIC CARBOXYMALTOSE
     Indication: Blood iron
     Dosage: 10 MILLILITER
  33. ACETAMINOPHEN [Concomitant]
     Active Substance: ACETAMINOPHEN
     Indication: Pain
     Dosage: 500 MILLIGRAM
  34. Natriumklorid Evolan [Concomitant]
     Indication: Hyponatraemia
     Dosage: 1000 MILLIGRAM, TID
     Dates: start: 20250527
  35. Natriumklorid braun [Concomitant]
     Indication: Prophylaxis
     Dosage: 1000 MILLILITER, BID
     Dates: start: 202007

REACTIONS (2)
  - Sepsis [Recovered/Resolved]
  - Nausea [Recovered/Resolved]

NARRATIVE: CASE EVENT DATE: 20230724
